FAERS Safety Report 25685947 (Version 3)
Quarter: 2025Q3

REPORT INFORMATION
  Report Type: Spontaneous
  Country: JP (occurrence: JP)
  Receive Date: 20250815
  Receipt Date: 20250903
  Transmission Date: 20251020
  Serious: Yes (Other)
  Sender: NOVO NORDISK
  Company Number: JP-NOVOPROD-1450820

PATIENT
  Age: 83 Year
  Sex: Female

DRUGS (4)
  1. XULTOPHY 100/3.6 [Suspect]
     Active Substance: INSULIN DEGLUDEC\LIRAGLUTIDE
     Indication: Latent autoimmune diabetes in adults
     Dosage: 16 IU, QD
     Route: 058
  2. METGLUCO [Concomitant]
     Active Substance: METFORMIN HYDROCHLORIDE
     Indication: Product used for unknown indication
     Route: 048
  3. MITIGLINIDE CALCIUM HYDRATE [Concomitant]
     Active Substance: MITIGLINIDE CALCIUM HYDRATE
     Indication: Product used for unknown indication
     Route: 048
  4. IPRAGLIFLOZIN L-PROLINE [Concomitant]
     Active Substance: IPRAGLIFLOZIN L-PROLINE
     Indication: Product used for unknown indication
     Route: 048

REACTIONS (3)
  - Hyperglycaemia [Recovering/Resolving]
  - Delirium [Unknown]
  - Product use in unapproved indication [Unknown]

NARRATIVE: CASE EVENT DATE: 20250602
